FAERS Safety Report 19299144 (Version 1)
Quarter: 2021Q2

REPORT INFORMATION
  Report Type: Spontaneous
  Country: RS (occurrence: RS)
  Receive Date: 20210524
  Receipt Date: 20210524
  Transmission Date: 20210717
  Serious: Yes (Hospitalization)
  Sender: FDA-Public Use
  Company Number: RS-009507513-2105SRB003789

PATIENT
  Age: 77 Year
  Sex: Male
  Weight: 108 kg

DRUGS (6)
  1. KEYTRUDA [Suspect]
     Active Substance: PEMBROLIZUMAB
     Indication: LUNG CANCER METASTATIC
     Dosage: 200 MILLIGRAM, Q3W
     Route: 042
     Dates: start: 20201230
  2. EUTHYROX [Concomitant]
     Active Substance: LEVOTHYROXINE SODIUM
     Dosage: 150 MG
  3. DILACOR XR [Concomitant]
     Active Substance: DILTIAZEM HYDROCHLORIDE
     Dosage: EVERY OTHER DAY
  4. NEBILET [Concomitant]
     Active Substance: NEBIVOLOL
     Dosage: 2X1
  5. PRADAXA [Concomitant]
     Active Substance: DABIGATRAN ETEXILATE MESYLATE
     Dosage: 1X1
  6. PROPAFEN [PROPAFENONE] [Concomitant]
     Dosage: 150MG, 2X1

REACTIONS (3)
  - Malaise [Unknown]
  - Asthenia [Unknown]
  - Blood thyroid stimulating hormone decreased [Unknown]

NARRATIVE: CASE EVENT DATE: 20210209
